FAERS Safety Report 9036387 (Version 1)
Quarter: 2013Q1

REPORT INFORMATION
  Report Type: Spontaneous
  Country: BE (occurrence: None)
  Receive Date: 20130114
  Receipt Date: 20130114
  Transmission Date: 20140127
  Serious: Yes (Other)
  Sender: FDA-Public Use
  Company Number: 2012P1068224

PATIENT
  Age: 66 Year
  Sex: Female
  Weight: 171.6 kg

DRUGS (2)
  1. ZANTAC [Suspect]
     Indication: PREMEDICATION
     Route: 042
     Dates: start: 20121114, end: 20121114
  2. SOLUMEDROL [Suspect]
     Indication: PREMEDICATION
     Route: 042
     Dates: start: 20121114

REACTIONS (4)
  - Erythema [None]
  - Paraesthesia [None]
  - Erythema [None]
  - Dyspnoea [None]
